FAERS Safety Report 14150986 (Version 2)
Quarter: 2018Q4

REPORT INFORMATION
  Report Type: Spontaneous
  Country: US (occurrence: US)
  Receive Date: 20171102
  Receipt Date: 20181022
  Transmission Date: 20190204
  Serious: Yes (Death, Hospitalization, Other)
  Sender: FDA-Public Use
  Company Number: US-CIPLA LTD.-2017US18970

PATIENT

DRUGS (4)
  1. CARBOPLATIN. [Suspect]
     Active Substance: CARBOPLATIN
     Indication: METASTATIC UTERINE CANCER
     Dosage: UNK, FIVE CYCLES
     Route: 042
  2. PACLITAXEL. [Suspect]
     Active Substance: PACLITAXEL
     Indication: METASTATIC UTERINE CANCER
     Dosage: UNK, FIVE CYCLES
     Route: 042
  3. DOCETAXEL. [Suspect]
     Active Substance: DOCETAXEL
     Indication: METASTATIC UTERINE CANCER
     Dosage: UNK, TWO CYCLES
     Route: 065
  4. CARBOPLATIN. [Suspect]
     Active Substance: CARBOPLATIN
     Dosage: UNK, TWO CYCLES
     Route: 065

REACTIONS (8)
  - Hypoxia [Unknown]
  - Hyperglycaemia [Unknown]
  - Metastatic uterine cancer [Fatal]
  - Neuropathy peripheral [Unknown]
  - Groin abscess [Unknown]
  - Malignant neoplasm progression [Unknown]
  - Ascites [Unknown]
  - Atrial fibrillation [Unknown]
